FAERS Safety Report 6145052-6 (Version None)
Quarter: 2009Q2

REPORT INFORMATION
  Report Type: 
  Country: None (occurrence: None)
  Receive Date: 20090401
  Receipt Date: 20090401
  Transmission Date: 20091009
  Serious: Yes (Disabling)
  Sender: FDA-Public Use
  Company Number: None

PATIENT
  Age: 41 Year
  Sex: Female
  Weight: 59 kg

DRUGS (1)
  1. ZOSYN [Suspect]
     Indication: BACTERAEMIA
     Dosage: 3.375 GRAMS Q6H IV 3 DOSES
     Route: 042
     Dates: start: 20090326, end: 20090327

REACTIONS (1)
  - TUBULOINTERSTITIAL NEPHRITIS [None]
